FAERS Safety Report 10195952 (Version 1)
Quarter: 2014Q2

REPORT INFORMATION
  Report Type: Spontaneous
  Country: US (occurrence: None)
  Receive Date: 20140523
  Receipt Date: 20140523
  Transmission Date: 20141212
  Serious: Yes (Other)
  Sender: FDA-Public Use
  Company Number: None

PATIENT
  Age: 62 Year
  Sex: Male
  Weight: 88 kg

DRUGS (18)
  1. LEVETIRACETAM [Suspect]
     Indication: EPILEPSY
     Dosage: 1 TABLET, BID, ORAL
     Route: 048
     Dates: start: 20140404, end: 20140428
  2. ASCORBIC ACID (VITAMIN C) 500 MG [Concomitant]
  3. ASPIRIN 81 MG [Concomitant]
  4. BIOFLAVONOIDS 500 MG [Concomitant]
  5. CHOLECALCIFEROL 2,000 UNITS [Concomitant]
  6. COENZYME Q10 200 MG [Concomitant]
  7. HYDROCORTISONE 2.5% CREAM [Concomitant]
  8. KETOCONAZOLE 2% CREAM [Concomitant]
  9. KETOCONAZOLE 2%, SHAMPOO [Concomitant]
  10. PROBIOTIC 10 BILLION CELL CAPSULE [Concomitant]
  11. MELATONIN 3 MG [Concomitant]
  12. MULTIVITAMIN [Concomitant]
  13. NIACIN 500 MG [Concomitant]
  14. OMEGA-3 FATTY ACIDS [Concomitant]
  15. RED YEAST RICE EXTRACT 1200/600 MG [Concomitant]
  16. SODIUM CHLORIDE NASAL SPRAY [Concomitant]
  17. ST. JOHN^S WORT 300 MG [Concomitant]
  18. LAMOTRINGINE 100 MG [Concomitant]

REACTIONS (5)
  - Depressed mood [None]
  - Depression [None]
  - Apathy [None]
  - Asthenia [None]
  - Feeling abnormal [None]
